FAERS Safety Report 7867225-4 (Version None)
Quarter: 2011Q4

REPORT INFORMATION
  Report Type: 
  Country: None (occurrence: None)
  Receive Date: 20111028
  Receipt Date: 20111020
  Transmission Date: 20120403
  Serious: Yes (Disabling)
  Sender: FDA-Public Use
  Company Number: FR-VIIV HEALTHCARE LIMITED-B0756995A

PATIENT

DRUGS (4)
  1. EPIVIR [Suspect]
     Indication: PROPHYLAXIS AGAINST HIV INFECTION
     Route: 064
     Dates: start: 20040222, end: 20040515
  2. RETROVIR [Suspect]
     Route: 064
     Dates: start: 20040222, end: 20040515
  3. RETROVIR [Suspect]
     Indication: PROPHYLAXIS AGAINST HIV INFECTION
     Dosage: 1.96MG FOUR TIMES PER DAY
     Route: 048
     Dates: start: 20040515, end: 20040615
  4. NELFINAVIR MESYLATE [Concomitant]
     Indication: PROPHYLAXIS AGAINST HIV INFECTION
     Route: 064
     Dates: start: 20040222, end: 20040515

REACTIONS (8)
  - AUTISM [None]
  - ANAEMIA [None]
  - MATERNAL DRUGS AFFECTING FOETUS [None]
  - CAESAREAN SECTION [None]
  - SPEECH DISORDER DEVELOPMENTAL [None]
  - FOETAL DISTRESS SYNDROME [None]
  - MATERNAL EXPOSURE DURING PREGNANCY [None]
  - PREMATURE BABY [None]
